FAERS Safety Report 20947181 (Version 3)
Quarter: 2022Q4

REPORT INFORMATION
  Report Type: Spontaneous
  Country: US (occurrence: US)
  Receive Date: 20220610
  Receipt Date: 20221107
  Transmission Date: 20230113
  Serious: Yes (Hospitalization, Other)
  Sender: FDA-Public Use
  Company Number: US-ALLERGAN-2218347US

PATIENT
  Sex: Male

DRUGS (7)
  1. LUMIGAN [Suspect]
     Active Substance: BIMATOPROST
     Indication: Glaucoma
     Dosage: 1 GTT, QHS
     Route: 047
     Dates: start: 2007
  2. COMBIGAN [Suspect]
     Active Substance: BRIMONIDINE TARTRATE\TIMOLOL MALEATE
     Indication: Glaucoma
     Dosage: 1 GTT, BID
     Dates: start: 2007
  3. FUROSEMIDE [Concomitant]
     Active Substance: FUROSEMIDE
     Indication: Swelling
     Dosage: 20 MG, QD
     Route: 048
  4. TADALAFIL [Concomitant]
     Active Substance: TADALAFIL
     Indication: Prostatic disorder
     Dosage: 5 MG, QD
     Route: 048
  5. NAPROXEN [Concomitant]
     Active Substance: NAPROXEN
     Dosage: 500 MG, BID
     Route: 048
  6. IRBESARTAN [Concomitant]
     Active Substance: IRBESARTAN
     Dosage: 300 MG, QD
     Route: 048
  7. ROSUVASTATIN CALCIUM [Concomitant]
     Active Substance: ROSUVASTATIN CALCIUM
     Dosage: 10 MG, QD
     Route: 048

REACTIONS (4)
  - Prostate cancer [Unknown]
  - Gallbladder rupture [Recovered/Resolved]
  - Blindness unilateral [Not Recovered/Not Resolved]
  - Procedural pain [Unknown]

NARRATIVE: CASE EVENT DATE: 20211223
